FAERS Safety Report 24445791 (Version 1)
Quarter: 2024Q4

REPORT INFORMATION
  Report Type: Spontaneous
  Country: FR (occurrence: FR)
  Receive Date: 20241016
  Receipt Date: 20241016
  Transmission Date: 20250114
  Serious: Yes (Hospitalization)
  Sender: NOVARTIS
  Company Number: None

PATIENT
  Age: 65 Year
  Sex: Female
  Weight: 72.6 kg

DRUGS (3)
  1. KISQALI [Suspect]
     Active Substance: RIBOCICLIB
     Indication: HER2 low breast cancer
     Dosage: 600 MG, QD
     Route: 048
     Dates: start: 20240813, end: 20240912
  2. LETROZOLE [Suspect]
     Active Substance: LETROZOLE
     Indication: HER2 low breast cancer
     Dosage: 2.5 MG, QD
     Route: 048
     Dates: start: 20240813, end: 20240912
  3. LEVOTHYROXINE [Concomitant]
     Active Substance: LEVOTHYROXINE
     Indication: Hypothyroidism
     Dosage: 25 UG, QD
     Route: 048
     Dates: start: 20230101, end: 20240912

REACTIONS (1)
  - Hepatocellular injury [Recovering/Resolving]

NARRATIVE: CASE EVENT DATE: 20240910
